FAERS Safety Report 19520105 (Version 1)
Quarter: 2021Q3

REPORT INFORMATION
  Report Type: Report from Study
  Country: IL (occurrence: IL)
  Receive Date: 20210712
  Receipt Date: 20210712
  Transmission Date: 20211014
  Serious: Yes (Death, Hospitalization, Other)
  Sender: FDA-Public Use
  Company Number: IL-PFIZER INC-2021807523

PATIENT
  Age: 59 Year
  Sex: Male

DRUGS (13)
  1. ACTINOMYCIN D [Suspect]
     Active Substance: DACTINOMYCIN
     Indication: EWING^S SARCOMA
     Dosage: UNK, CYCLIC,  (75% OF THE PLANNED DOSE)
  2. DOXORUBICIN HCL [Suspect]
     Active Substance: DOXORUBICIN HYDROCHLORIDE
     Indication: EWING^S SARCOMA
     Dosage: UNK, CYCLIC,  (75% OF THE PLANNED DOSE)
  3. ETOPOSIDE. [Suspect]
     Active Substance: ETOPOSIDE
     Indication: EWING^S SARCOMA
     Dosage: UNK, EVERY 3 WEEKS,  (75% OF THE PLANNED DOSE)
  4. DOXORUBICIN HCL [Suspect]
     Active Substance: DOXORUBICIN HYDROCHLORIDE
     Dosage: UNK, CYCLIC, (DOSE REDUCTIONS WERE REQUIRED AFTER EVERY CYCLE)
  5. IFOSFAMIDE. [Suspect]
     Active Substance: IFOSFAMIDE
     Dosage: UNK, EVERY 3 WEEKS, (DOSE REDUCTIONS WERE REQUIRED AFTER EVERY CYCLE)
  6. VINCRISTINE [Suspect]
     Active Substance: VINCRISTINE
     Indication: EWING^S SARCOMA
     Dosage: UNK, CYCLIC,  (75% OF THE PLANNED DOSE)
  7. CYCLOPHOSPHAMIDE. [Suspect]
     Active Substance: CYCLOPHOSPHAMIDE
     Dosage: UNK, CYCLIC, (DOSE REDUCTIONS WERE REQUIRED AFTER EVERY CYCLE)
  8. VINCRISTINE [Suspect]
     Active Substance: VINCRISTINE
     Dosage: UNK, CYCLIC, (DOSE REDUCTIONS WERE REQUIRED AFTER EVERY CYCLE)
  9. ACTINOMYCIN D [Suspect]
     Active Substance: DACTINOMYCIN
     Dosage: UNK, CYCLIC, (DOSE REDUCTIONS WERE REQUIRED AFTER EVERY CYCLE)
  10. G?CSF [Concomitant]
     Active Substance: GRANULOCYTE COLONY-STIMULATING FACTOR NOS
     Indication: PROPHYLAXIS
     Dosage: UNK
  11. ETOPOSIDE. [Suspect]
     Active Substance: ETOPOSIDE
     Dosage: UNK, EVERY 3 WEEKS, (DOSE REDUCTIONS WERE REQUIRED AFTER EVERY CYCLE)
  12. IFOSFAMIDE. [Suspect]
     Active Substance: IFOSFAMIDE
     Indication: EWING^S SARCOMA
     Dosage: UNK, EVERY 3 WEEKS,  (75% OF THE PLANNED DOSE)
  13. CYCLOPHOSPHAMIDE. [Suspect]
     Active Substance: CYCLOPHOSPHAMIDE
     Indication: EWING^S SARCOMA
     Dosage: UNK, CYCLIC,  (75% OF THE PLANNED DOSE)

REACTIONS (4)
  - Pneumonia [Fatal]
  - Cellulitis [Unknown]
  - Septic shock [Fatal]
  - Febrile neutropenia [Unknown]
